FAERS Safety Report 13687195 (Version 1)
Quarter: 2017Q2

REPORT INFORMATION
  Report Type: Spontaneous
  Country: US (occurrence: US)
  Receive Date: 20170623
  Receipt Date: 20170623
  Transmission Date: 20170830
  Serious: No
  Sender: FDA-Public Use
  Company Number: US-AQUA PHARMACEUTICALS-2016AQU000278

PATIENT

DRUGS (2)
  1. CORDRAN [Suspect]
     Active Substance: FLURANDRENOLIDE
     Indication: SEBORRHOEIC DERMATITIS
     Dosage: UNK, QD
     Route: 061
  2. CORDRAN [Suspect]
     Active Substance: FLURANDRENOLIDE
     Dosage: UNK, QD
     Route: 061
     Dates: start: 201606

REACTIONS (1)
  - Therapeutic product ineffective [Unknown]

NARRATIVE: CASE EVENT DATE: 2016
